FAERS Safety Report 4928027-1 (Version None)
Quarter: 2006Q1

REPORT INFORMATION
  Report Type: 
  Country: None (occurrence: None)
  Receive Date: 20060127
  Receipt Date: 20051214
  Transmission Date: 20060701
  Serious: Yes (Other)
  Sender: FDA-Public Use
  Company Number: 2005168706

PATIENT
  Sex: Female

DRUGS (7)
  1. LYRICA [Suspect]
     Indication: PAIN
     Dosage: 200 MG (50 MG, 2 IN 1 D), ORAL
     Route: 048
     Dates: start: 20050101
  2. PREMARIN [Concomitant]
  3. MYSOLINE [Concomitant]
  4. TENORMIN [Concomitant]
  5. EFFEXOR [Concomitant]
  6. ELAVIL [Concomitant]
  7. PERCOCET [Concomitant]

REACTIONS (2)
  - VISION BLURRED [None]
  - WEIGHT INCREASED [None]
